FAERS Safety Report 5965129-5 (Version None)
Quarter: 2008Q4

REPORT INFORMATION
  Report Type: 
  Country: None (occurrence: None)
  Receive Date: 20081124
  Receipt Date: 20081124
  Transmission Date: 20090506
  Serious: Yes (Hospitalization)
  Sender: FDA-Public Use
  Company Number: None

PATIENT
  Sex: Male
  Weight: 85.09 kg

DRUGS (1)
  1. TEMOZOLOMIDE [Suspect]
     Dosage: 5400 MG

REACTIONS (2)
  - BLINDNESS UNILATERAL [None]
  - VISUAL FIELD DEFECT [None]
